FAERS Safety Report 13533637 (Version 1)
Quarter: 2017Q2

REPORT INFORMATION
  Report Type: Spontaneous
  Country: GB (occurrence: GB)
  Receive Date: 20170510
  Receipt Date: 20170510
  Transmission Date: 20170830
  Serious: Yes (Hospitalization, Disabling)
  Sender: FDA-Public Use
  Company Number: GB-BAYER-2017-082783

PATIENT
  Sex: Male

DRUGS (1)
  1. CIPROXIN 100/50 MG/ML [Suspect]
     Active Substance: CIPROFLOXACIN
     Dosage: UNK

REACTIONS (5)
  - Pain [None]
  - Thermal burn [None]
  - Gait disturbance [Not Recovered/Not Resolved]
  - Mood swings [None]
  - Blister [None]

NARRATIVE: CASE EVENT DATE: 2005
